FAERS Safety Report 7241524-1 (Version None)
Quarter: 2011Q1

REPORT INFORMATION
  Report Type: 
  Country: None (occurrence: None)
  Receive Date: 20110112
  Receipt Date: 20101228
  Transmission Date: 20110831
  Serious: Yes (Death, Other)
  Sender: FDA-Public Use
  Company Number: THYM-1001243

PATIENT
  Age: 62 Year
  Sex: Female
  Weight: 40 kg

DRUGS (7)
  1. CYTARABNIE (CYTARABINE) [Concomitant]
  2. FLUDARA [Concomitant]
  3. MELPHALAN HYDROCHLORIDE [Concomitant]
  4. THYMOGLOBULIN [Suspect]
     Indication: BONE MARROW CONDITIONING REGIMEN
     Dosage: INTRAVENOUS ; 50 MG, QD, INTRAVENOUS
     Route: 042
     Dates: start: 20090618, end: 20090618
  5. THYMOGLOBULIN [Suspect]
     Indication: ACUTE GRAFT VERSUS HOST DISEASE
     Dosage: INTRAVENOUS ; 50 MG, QD, INTRAVENOUS
     Route: 042
     Dates: start: 20090618, end: 20090618
  6. THYMOGLOBULIN [Suspect]
     Indication: BONE MARROW CONDITIONING REGIMEN
     Dosage: INTRAVENOUS ; 50 MG, QD, INTRAVENOUS
     Route: 042
     Dates: start: 20090516, end: 20090519
  7. THYMOGLOBULIN [Suspect]
     Indication: ACUTE GRAFT VERSUS HOST DISEASE
     Dosage: INTRAVENOUS ; 50 MG, QD, INTRAVENOUS
     Route: 042
     Dates: start: 20090516, end: 20090519

REACTIONS (6)
  - MULTI-ORGAN FAILURE [None]
  - ACUTE GRAFT VERSUS HOST DISEASE IN LIVER [None]
  - RESPIRATORY FAILURE [None]
  - PNEUMONIA [None]
  - RENAL FAILURE [None]
  - CARDIAC FAILURE CONGESTIVE [None]
